FAERS Safety Report 9238281 (Version 2)
Quarter: 2013Q2

REPORT INFORMATION
  Report Type: Spontaneous
  Country: JP (occurrence: None)
  Receive Date: 20130416
  Receipt Date: 20130506
  Transmission Date: 20140414
  Serious: Yes (Other)
  Sender: FDA-Public Use
  Company Number: SYM-2013-02674

PATIENT
  Age: 69 Year
  Sex: Male

DRUGS (3)
  1. FLUOROURACIL (FLUOROURACIL)(FLUOROURACIL) [Suspect]
     Indication: RECTAL CANCER METASTATIC
     Dates: start: 200803
  2. OXALIPLATIN [Suspect]
     Indication: RECTAL CANCER METASTATIC
     Dosage: 1 IN 1D.
     Dates: start: 200803
  3. FOLINIC ACID (FOLINIC ACID)(FOLINIC ACID) [Suspect]
     Indication: RECTAL CANCER METASTATIC
     Dates: start: 200803

REACTIONS (2)
  - Fatigue [None]
  - Neutropenia [None]
